FAERS Safety Report 7260982-X (Version None)
Quarter: 2011Q1

REPORT INFORMATION
  Report Type: 
  Country: None (occurrence: None)
  Receive Date: 20110130
  Receipt Date: 20101112
  Transmission Date: 20110831
  Serious: No
  Sender: FDA-Public Use
  Company Number: US-ABBOTT-10P-163-0685211-00

PATIENT
  Age: 74 Year
  Sex: Female

DRUGS (11)
  1. PROZAC [Concomitant]
     Indication: PRODUCT USED FOR UNKNOWN INDICATION
  2. UNKNOWN MEDICATION [Concomitant]
     Indication: BLOOD CHOLESTEROL
  3. CLARITIN [Concomitant]
     Indication: HYPERSENSITIVITY
  4. HUMIRA [Suspect]
     Indication: PSORIASIS
     Dates: start: 20100901
  5. VITAMIN D [Concomitant]
     Indication: PRODUCT USED FOR UNKNOWN INDICATION
  6. NEXIUM [Concomitant]
     Indication: PRODUCT USED FOR UNKNOWN INDICATION
  7. HYDROCHLOROTHIAZIDE [Concomitant]
     Indication: PRODUCT USED FOR UNKNOWN INDICATION
  8. TRAMADOL HCL [Concomitant]
     Indication: PRODUCT USED FOR UNKNOWN INDICATION
  9. CLOBETASOL [Concomitant]
     Indication: PSORIASIS
  10. CELEBREX [Concomitant]
     Indication: PRODUCT USED FOR UNKNOWN INDICATION
  11. PROVENTIL [Concomitant]
     Indication: PRODUCT USED FOR UNKNOWN INDICATION

REACTIONS (6)
  - RASH PRURITIC [None]
  - MOVEMENT DISORDER [None]
  - MYALGIA [None]
  - DRUG INEFFECTIVE [None]
  - HEAT RASH [None]
  - PAIN IN EXTREMITY [None]
